FAERS Safety Report 6711950-5 (Version None)
Quarter: 2010Q2

REPORT INFORMATION
  Report Type: 
  Country: None (occurrence: None)
  Receive Date: 20100505
  Receipt Date: 20100429
  Transmission Date: 20101027
  Serious: Yes (Other)
  Sender: FDA-Public Use
  Company Number: CHPA2010DE07696

PATIENT
  Sex: Male

DRUGS (1)
  1. LAMISIL CREAM [Suspect]
     Dosage: UNK, ONCE/SINGLE
     Route: 064
     Dates: start: 20090602, end: 20090602

REACTIONS (2)
  - DRUG EXPOSURE DURING PREGNANCY [None]
  - NAEVUS FLAMMEUS [None]
